FAERS Safety Report 14668480 (Version 1)
Quarter: 2018Q1

REPORT INFORMATION
  Report Type: Spontaneous
  Country: CA (occurrence: CA)
  Receive Date: 20180322
  Receipt Date: 20180322
  Transmission Date: 20180509
  Serious: Yes (Life-Threatening)
  Sender: FDA-Public Use
  Company Number: CA-BAYER-2018-051605

PATIENT
  Age: 41 Year
  Sex: Female

DRUGS (1)
  1. MIRENA [Suspect]
     Active Substance: LEVONORGESTREL
     Indication: VAGINAL HAEMORRHAGE
     Dosage: 20 MCG/24HR, CONT
     Route: 015

REACTIONS (9)
  - Depression [Unknown]
  - Visual impairment [Unknown]
  - Muscle spasms [Unknown]
  - Anxiety [Unknown]
  - Migraine [Unknown]
  - Arthralgia [Unknown]
  - Loss of libido [Unknown]
  - Vertigo [Unknown]
  - Nausea [Unknown]
